FAERS Safety Report 5914015-5 (Version None)
Quarter: 2008Q4

REPORT INFORMATION
  Report Type: 
  Country: None (occurrence: None)
  Receive Date: 20081007
  Receipt Date: 20080922
  Transmission Date: 20090506
  Serious: Yes (Hospitalization, Other)
  Sender: FDA-Public Use
  Company Number: 08-001566

PATIENT
  Age: 72 Year
  Sex: Male

DRUGS (1)
  1. TACLONE(CALCIPOTRIENE 0.005%, BETAMETHASONE DIPROPIONATE 0.064%) OINTM [Suspect]
     Indication: PSORIASIS
     Dosage: SINGLE, TOPICAL
     Route: 061
     Dates: start: 20080906, end: 20080906

REACTIONS (2)
  - DYSPNOEA [None]
  - SWOLLEN TONGUE [None]
